FAERS Safety Report 10145783 (Version 1)
Quarter: 2014Q2

REPORT INFORMATION
  Report Type: Spontaneous
  Country: US (occurrence: US)
  Receive Date: 20140501
  Receipt Date: 20140501
  Transmission Date: 20141212
  Serious: No
  Sender: FDA-Public Use
  Company Number: US-ABBVIE-14P-163-1211221-00

PATIENT
  Age: 51 Year
  Sex: Male
  Weight: 70.82 kg

DRUGS (1)
  1. CREON [Suspect]
     Indication: PANCREATITIS CHRONIC
     Dates: start: 2011, end: 2012

REACTIONS (2)
  - Abdominal distension [Recovered/Resolved]
  - Weight decreased [Not Recovered/Not Resolved]
